FAERS Safety Report 15241355 (Version 1)
Quarter: 2018Q3

REPORT INFORMATION
  Report Type: Spontaneous
  Country: US (occurrence: US)
  Receive Date: 20180805
  Receipt Date: 20180805
  Transmission Date: 20181010
  Serious: No
  Sender: FDA-Public Use
  Company Number: US-ASTRAZENECA-2018SE90748

PATIENT
  Age: 68 Year
  Sex: Male
  Weight: 102.1 kg

DRUGS (6)
  1. ALBUTEROL. [Concomitant]
     Active Substance: ALBUTEROL
  2. METFORMIN [Concomitant]
     Active Substance: METFORMIN HYDROCHLORIDE
     Indication: TYPE 2 DIABETES MELLITUS
  3. GLYBERIDE [Concomitant]
     Indication: TYPE 2 DIABETES MELLITUS
  4. SYMBICORT [Suspect]
     Active Substance: BUDESONIDE\FORMOTEROL FUMARATE DIHYDRATE
     Indication: DYSPNOEA
     Dosage: 160/4.5 UG, TWO INHALATIONS TWO TIMES A DAY
     Route: 055
  5. VENTOLIN [Concomitant]
     Active Substance: ALBUTEROL SULFATE
  6. FLUTICASONE. [Concomitant]
     Active Substance: FLUTICASONE
     Route: 045

REACTIONS (16)
  - Skeletal injury [Unknown]
  - Product use in unapproved indication [Unknown]
  - Aphonia [Unknown]
  - Pharyngeal erythema [Unknown]
  - Blood glucose increased [Unknown]
  - Off label use [Unknown]
  - Productive cough [Unknown]
  - Limb injury [Unknown]
  - Influenza [Unknown]
  - Dysphagia [Unknown]
  - Fatigue [Unknown]
  - Fine motor skill dysfunction [Unknown]
  - Asthenia [Unknown]
  - Oxygen saturation decreased [Recovered/Resolved]
  - Sinus disorder [Unknown]
  - Dysphonia [Unknown]

NARRATIVE: CASE EVENT DATE: 2017
